FAERS Safety Report 6095964-7 (Version None)
Quarter: 2009Q1

REPORT INFORMATION
  Report Type: 
  Country: None (occurrence: None)
  Receive Date: 20090227
  Receipt Date: 20080725
  Transmission Date: 20090719
  Serious: No
  Sender: FDA-Public Use
  Company Number: A0739577A

PATIENT
  Age: 72 Year
  Sex: Female

DRUGS (6)
  1. LAMICTAL [Suspect]
     Indication: MAJOR DEPRESSION
     Route: 048
     Dates: start: 20070101, end: 20080724
  2. DOXEPIN HCL [Concomitant]
  3. XANAX [Concomitant]
  4. EFFEXOR [Concomitant]
  5. BENAZEPRIL HYDROCHLORIDE [Concomitant]
  6. SIMVASTATIN [Concomitant]

REACTIONS (5)
  - ATAXIA [None]
  - BALANCE DISORDER [None]
  - CONTUSION [None]
  - FALL [None]
  - PRODUCT QUALITY ISSUE [None]
